FAERS Safety Report 16239066 (Version 1)
Quarter: 2019Q2

REPORT INFORMATION
  Report Type: Spontaneous
  Country: US (occurrence: US)
  Receive Date: 20190321
  Receipt Date: 20190321
  Transmission Date: 20190711
  Serious: No
  Sender: FDA-Public Use
  Company Number: None

PATIENT
  Age: 65 Year
  Sex: Female
  Weight: 49.9 kg

DRUGS (4)
  1. FORTEO [Suspect]
     Active Substance: TERIPARATIDE
     Indication: INTERVERTEBRAL DISC DEGENERATION
     Route: 058
     Dates: start: 201712
  2. FORTEO [Suspect]
     Active Substance: TERIPARATIDE
     Indication: SPINAL OSTEOARTHRITIS
     Route: 058
     Dates: start: 201712
  3. FORTEO [Suspect]
     Active Substance: TERIPARATIDE
     Indication: CHRONIC IDIOPATHIC PAIN SYNDROME
     Route: 058
     Dates: start: 201712
  4. FORTEO [Suspect]
     Active Substance: TERIPARATIDE
     Indication: ARTHROPATHY
     Route: 058
     Dates: start: 201712

REACTIONS (1)
  - Incorrect product administration duration [None]
